FAERS Safety Report 20816750 (Version 4)
Quarter: 2022Q3

REPORT INFORMATION
  Report Type: Report from Study
  Country: US (occurrence: US)
  Receive Date: 20220512
  Receipt Date: 20220928
  Transmission Date: 20221027
  Serious: Yes (Other)
  Sender: FDA-Public Use
  Company Number: US-ASTELLAS-2022US004204

PATIENT
  Age: 80 Year
  Sex: Male
  Weight: 64.399 kg

DRUGS (12)
  1. ENZALUTAMIDE [Suspect]
     Active Substance: ENZALUTAMIDE
     Indication: Prostate cancer
     Route: 048
     Dates: start: 20211021
  2. ENZALUTAMIDE [Suspect]
     Active Substance: ENZALUTAMIDE
     Indication: Illness
     Dosage: 80 MG, ONCE DAILY (REPORTED AS CUTTING THE MEDICATION IN HALF)
     Route: 048
  3. ENZALUTAMIDE [Suspect]
     Active Substance: ENZALUTAMIDE
     Route: 048
     Dates: start: 20220101
  4. ENZALUTAMIDE [Suspect]
     Active Substance: ENZALUTAMIDE
     Route: 048
     Dates: start: 20220510, end: 20220512
  5. SULFASALAZINE [Suspect]
     Active Substance: SULFASALAZINE
     Indication: Rheumatoid arthritis
     Route: 065
  6. PREDNISONE [Concomitant]
     Active Substance: PREDNISONE
     Indication: Product used for unknown indication
     Route: 065
  7. BICALUTAMIDE [Concomitant]
     Active Substance: BICALUTAMIDE
     Indication: Product used for unknown indication
     Route: 065
  8. AUGMENTIN ES-600 [Concomitant]
     Active Substance: AMOXICILLIN\CLAVULANATE POTASSIUM
     Indication: Product used for unknown indication
     Dosage: UNK UNK, UNKNOWN FREQ. (600)
     Route: 065
  9. PANTOPRAZOLE SODIUM [Concomitant]
     Active Substance: PANTOPRAZOLE SODIUM
     Indication: Product used for unknown indication
     Dosage: 20 MG, UNKNOWN FREQ. (DR)
     Route: 065
  10. TRELSTAR [Concomitant]
     Active Substance: TRIPTORELIN PAMOATE
     Indication: Product used for unknown indication
     Dosage: 11.25 MG, UNKNOWN FREQ. (VIAL)
     Route: 065
  11. VITAMIN D [Concomitant]
     Active Substance: VITAMIN D NOS
     Indication: Product used for unknown indication
     Dosage: 10 ?G, UNKNOWN FREQ. (REPORTED AS VITAMIN D-400)
     Route: 065
  12. ALENDRONATE SODIUM [Concomitant]
     Active Substance: ALENDRONATE SODIUM
     Indication: Product used for unknown indication
     Route: 065

REACTIONS (25)
  - Neuropathy peripheral [Unknown]
  - Hypertension [Unknown]
  - Oesophageal disorder [Unknown]
  - Balance disorder [Recovering/Resolving]
  - Dizziness [Recovering/Resolving]
  - Anxiety [Unknown]
  - Confusional state [Unknown]
  - Nausea [Recovering/Resolving]
  - Hot flush [Unknown]
  - Fatigue [Recovering/Resolving]
  - Memory impairment [Recovering/Resolving]
  - Abdominal distension [Recovering/Resolving]
  - Gastric disorder [Unknown]
  - Disorientation [Unknown]
  - Feeling abnormal [Unknown]
  - Eating disorder [Unknown]
  - Taste disorder [Unknown]
  - Asthenia [Unknown]
  - Drug hypersensitivity [Unknown]
  - Malnutrition [Unknown]
  - Somnolence [Unknown]
  - Gait disturbance [Unknown]
  - Dyspnoea [Unknown]
  - Wrong technique in product usage process [Unknown]
  - Product use complaint [Unknown]

NARRATIVE: CASE EVENT DATE: 20220101
